FAERS Safety Report 11100918 (Version 9)
Quarter: 2015Q3

REPORT INFORMATION
  Report Type: Report from Study
  Country: US (occurrence: US)
  Receive Date: 20150508
  Receipt Date: 20150928
  Transmission Date: 20151125
  Serious: Yes (Hospitalization, Other)
  Sender: FDA-Public Use
  Company Number: US-SA-2015SA054122

PATIENT
  Age: 54 Year
  Sex: Male

DRUGS (5)
  1. ZOLOFT [Concomitant]
     Active Substance: SERTRALINE HYDROCHLORIDE
  2. AUBAGIO [Suspect]
     Active Substance: TERIFLUNOMIDE
     Indication: MULTIPLE SCLEROSIS
     Route: 048
     Dates: start: 20150311
  3. AUBAGIO [Suspect]
     Active Substance: TERIFLUNOMIDE
     Indication: MULTIPLE SCLEROSIS
     Route: 048
     Dates: end: 20150706
  4. AUBAGIO [Suspect]
     Active Substance: TERIFLUNOMIDE
     Indication: MULTIPLE SCLEROSIS
     Route: 048
     Dates: start: 20150708
  5. AMITRIPTYLINE [Concomitant]
     Active Substance: AMITRIPTYLINE

REACTIONS (20)
  - Bladder disorder [Unknown]
  - Somnolence [Unknown]
  - Alopecia [Unknown]
  - Suicidal ideation [Unknown]
  - Diarrhoea [Unknown]
  - Dysuria [Unknown]
  - Disturbance in attention [Unknown]
  - Unevaluable event [Unknown]
  - Memory impairment [Unknown]
  - Drug ineffective [Unknown]
  - Fatigue [Unknown]
  - Intervertebral disc degeneration [Recovering/Resolving]
  - Multiple sclerosis relapse [Unknown]
  - Diarrhoea [Unknown]
  - Intervertebral disc protrusion [Unknown]
  - Muscle spasms [Unknown]
  - Asthenia [Unknown]
  - Memory impairment [Unknown]
  - Alopecia [Unknown]
  - Ill-defined disorder [Unknown]

NARRATIVE: CASE EVENT DATE: 2015
